FAERS Safety Report 6485870-8 (Version None)
Quarter: 2009Q4

REPORT INFORMATION
  Report Type: 
  Country: None (occurrence: None)
  Receive Date: 20091204
  Receipt Date: 20091124
  Transmission Date: 20100525
  Serious: Yes (Other)
  Sender: FDA-Public Use
  Company Number: 2009US004216

PATIENT
  Age: 68 Year
  Sex: Female

DRUGS (1)
  1. LEXISCAN [Suspect]
     Indication: SCAN MYOCARDIAL PERFUSION
     Dosage: IV NOS

REACTIONS (4)
  - BLOOD PRESSURE INCREASED [None]
  - FLUSHING [None]
  - HEADACHE [None]
  - MALAISE [None]
